FAERS Safety Report 6847444-6 (Version None)
Quarter: 2010Q3

REPORT INFORMATION
  Report Type: 
  Country: None (occurrence: None)
  Receive Date: 20100716
  Receipt Date: 20100706
  Transmission Date: 20110219
  Serious: Yes (Other)
  Sender: FDA-Public Use
  Company Number: CR-PFIZER INC-2010084809

PATIENT
  Sex: Female

DRUGS (1)
  1. ALTRULINE [Suspect]
     Dosage: UNK
     Route: 048

REACTIONS (4)
  - AGITATION [None]
  - DEPRESSION [None]
  - FEELING ABNORMAL [None]
  - INSOMNIA [None]
